FAERS Safety Report 16424222 (Version 1)
Quarter: 2019Q2

REPORT INFORMATION
  Report Type: Spontaneous
  Country: JP (occurrence: JP)
  Receive Date: 20190613
  Receipt Date: 20190613
  Transmission Date: 20190711
  Serious: Yes (Other)
  Sender: FDA-Public Use
  Company Number: JP-GLAXOSMITHKLINE-JP2019JPN054709

PATIENT
  Age: 54 Year
  Sex: Male

DRUGS (1)
  1. RELVAR ELLIPTA [Suspect]
     Active Substance: FLUTICASONE FUROATE\VILANTEROL TRIFENATATE
     Indication: LUNG NEOPLASM MALIGNANT
     Dosage: 200 ?G, UNK
     Route: 055

REACTIONS (6)
  - Takayasu^s arteritis [Unknown]
  - Wrong technique in product usage process [Unknown]
  - Productive cough [Unknown]
  - Dyspnoea [Unknown]
  - Cushingoid [Unknown]
  - Product use in unapproved indication [Unknown]
